FAERS Safety Report 10489801 (Version 1)
Quarter: 2014Q4

REPORT INFORMATION
  Report Type: Spontaneous
  Country: US (occurrence: US)
  Receive Date: 20141002
  Receipt Date: 20141002
  Transmission Date: 20150528
  Serious: Yes (Death)
  Sender: FDA-Public Use
  Company Number: US-INCYTE CORPORATION-2014IN002805

PATIENT
  Age: 70 Year
  Sex: Male
  Weight: 88.44 kg

DRUGS (12)
  1. FLUCONAZOLE. [Concomitant]
     Active Substance: FLUCONAZOLE
  2. JAKAFI [Suspect]
     Active Substance: RUXOLITINIB
     Indication: MYELOFIBROSIS
     Dosage: 15 MG, BID
     Route: 048
     Dates: start: 20140516, end: 20140926
  3. PANTOPRAZOLE [Concomitant]
     Active Substance: PANTOPRAZOLE SODIUM
  4. PREDNISONE. [Concomitant]
     Active Substance: PREDNISONE
  5. ASPIRIN. [Concomitant]
     Active Substance: ASPIRIN
  6. LAXATIVE [Concomitant]
     Active Substance: UNSPECIFIED INGREDIENT
  7. ATENOLOL. [Concomitant]
     Active Substance: ATENOLOL
  8. FENOFIBRATE. [Concomitant]
     Active Substance: FENOFIBRATE
  9. HYDROXYZINE [Concomitant]
     Active Substance: HYDROXYZINE\HYDROXYZINE HYDROCHLORIDE
  10. STOOL SOFTENER [Concomitant]
     Active Substance: DOCUSATE CALCIUM
  11. LEVOTHYROXINE [Concomitant]
     Active Substance: LEVOTHYROXINE
  12. MULTIVITAMINS [Concomitant]
     Active Substance: VITAMINS

REACTIONS (1)
  - Death [Fatal]

NARRATIVE: CASE EVENT DATE: 20140926
